FAERS Safety Report 18433910 (Version 1)
Quarter: 2020Q4

REPORT INFORMATION
  Report Type: Spontaneous
  Country: US (occurrence: US)
  Receive Date: 20201027
  Receipt Date: 20201027
  Transmission Date: 20210114
  Serious: Yes (Death)
  Sender: FDA-Public Use
  Company Number: US-FRESENIUS KABI-FK202011345

PATIENT
  Age: 55 Year
  Sex: Male

DRUGS (5)
  1. VANCOMYCIN (MANUFACTURER UNKNOWN) [Suspect]
     Active Substance: VANCOMYCIN
     Indication: PNEUMONIA
     Dosage: UNKNOWN
     Route: 042
  2. MEROPENEM (MANUFACTURER UNKNOWN) [Suspect]
     Active Substance: MEROPENEM
     Indication: NOCARDIOSIS
     Dosage: UNKNOWN
     Route: 042
  3. SULFAMETHOXAZOLE/TRIMETHOPRIM [Suspect]
     Active Substance: SULFAMETHOXAZOLE\TRIMETHOPRIM
     Indication: NOCARDIOSIS
     Dosage: UNKNOWN
     Route: 042
  4. CEFTRIAXONE FOR INJECTION (MANUFACTURER UNKNOWN) [Suspect]
     Active Substance: CEFTRIAXONE
     Indication: PNEUMONIA
     Dosage: UNKNOWN
     Route: 042
  5. LEVOFLOXACIN (MANUFACTURER UNKNOWN) [Suspect]
     Active Substance: LEVOFLOXACIN
     Indication: PNEUMONIA
     Dosage: UNKNOWN
     Route: 042

REACTIONS (1)
  - Treatment failure [Fatal]
